FAERS Safety Report 18873926 (Version 2)
Quarter: 2021Q1

REPORT INFORMATION
  Report Type: Spontaneous
  Country: US (occurrence: US)
  Receive Date: 20210210
  Receipt Date: 20210210
  Transmission Date: 20210420
  Serious: No
  Sender: FDA-Public Use
  Company Number: US-PFIZER INC-2021115958

PATIENT
  Age: 60 Year
  Sex: Female

DRUGS (3)
  1. RAPAMUNE [Interacting]
     Active Substance: SIROLIMUS
     Dosage: UNK, CYCLIC (THREE WEEKS ON AND ONE WEEK OFF)
  2. RAPAMUNE [Interacting]
     Active Substance: SIROLIMUS
     Dosage: 1 MG, DAILY
     Route: 048
  3. IBRANCE [Suspect]
     Active Substance: PALBOCICLIB
     Dosage: UNK

REACTIONS (3)
  - Drug interaction [Unknown]
  - Off label use [Unknown]
  - Laboratory test abnormal [Unknown]
